FAERS Safety Report 25038176 (Version 2)
Quarter: 2025Q1

REPORT INFORMATION
  Report Type: Spontaneous
  Country: US (occurrence: US)
  Receive Date: 20250304
  Receipt Date: 20250305
  Transmission Date: 20250409
  Serious: Yes (Other)
  Sender: PFIZER
  Company Number: US-PFIZER INC-202500045454

PATIENT
  Age: 72 Year
  Sex: Female
  Weight: 77.11 kg

DRUGS (6)
  1. BUPIVACAINE HYDROCHLORIDE [Interacting]
     Active Substance: BUPIVACAINE HYDROCHLORIDE
     Indication: Arthralgia
     Dates: start: 202405
  2. BUPIVACAINE HYDROCHLORIDE [Interacting]
     Active Substance: BUPIVACAINE HYDROCHLORIDE
     Dates: start: 20250219
  3. LIDOCAINE HYDROCHLORIDE [Interacting]
     Active Substance: LIDOCAINE HYDROCHLORIDE
     Indication: Arthralgia
     Dates: start: 202405
  4. LIDOCAINE HYDROCHLORIDE [Interacting]
     Active Substance: LIDOCAINE HYDROCHLORIDE
     Dates: start: 20250219
  5. KENALOG [Interacting]
     Active Substance: TRIAMCINOLONE ACETONIDE
     Indication: Arthralgia
     Dates: start: 202405
  6. KENALOG [Interacting]
     Active Substance: TRIAMCINOLONE ACETONIDE
     Dates: start: 20250219

REACTIONS (7)
  - Hypertension [Unknown]
  - Drug interaction [Unknown]
  - Headache [Unknown]
  - Nausea [Unknown]
  - Flushing [Unknown]
  - Chills [Unknown]
  - White blood cell count increased [Unknown]

NARRATIVE: CASE EVENT DATE: 20240501
